FAERS Safety Report 9415135 (Version 1)
Quarter: 2013Q3

REPORT INFORMATION
  Report Type: Spontaneous
  Country: US (occurrence: US)
  Receive Date: 20130723
  Receipt Date: 20130723
  Transmission Date: 20140515
  Serious: Yes (Hospitalization)
  Sender: FDA-Public Use
  Company Number: US-SANOFI-AVENTIS-2013SA072884

PATIENT
  Age: 63 Year
  Sex: Female

DRUGS (3)
  1. LANTUS SOLOSTAR [Suspect]
     Indication: TYPE 2 DIABETES MELLITUS
     Dosage: TAKEN FROM:7 YEARS AGO DOSE:52 UNIT(S)
     Route: 051
  2. SOLOSTAR [Suspect]
     Indication: TYPE 2 DIABETES MELLITUS
     Dosage: TAKEN FROM:7 YEARS AGO
  3. PREDNISONE [Concomitant]

REACTIONS (5)
  - Arthropathy [Unknown]
  - Malaise [Unknown]
  - Gait disturbance [Recovering/Resolving]
  - Respiratory disorder [Unknown]
  - Blood glucose fluctuation [Unknown]
